FAERS Safety Report 9274679 (Version 1)
Quarter: 2013Q3

REPORT INFORMATION
  Report Type: Spontaneous
  Country: US (occurrence: None)
  Receive Date: 20130430
  Receipt Date: 20130430
  Transmission Date: 20140515
  Serious: Yes (Hospitalization)
  Sender: FDA-Public Use
  Company Number: None

PATIENT
  Age: 55 Year
  Sex: Female
  Weight: 61.2 kg

DRUGS (2)
  1. CARFILZOMIB [Suspect]
     Indication: PLASMA CELL MYELOMA
     Dosage: 45MG/M2,IV,BIWEEK,3X/WE
     Route: 042
     Dates: start: 20130226, end: 20130424
  2. PEGYLATED LIPOSOMAL DOXORUBICIN [Suspect]
     Indication: PLASMA CELL MYELOMA
     Dates: start: 20130226, end: 20130424

REACTIONS (1)
  - Pneumococcal bacteraemia [None]
